FAERS Safety Report 9608369 (Version 2)
Quarter: 2013Q4

REPORT INFORMATION
  Report Type: Spontaneous
  Country: US (occurrence: US)
  Receive Date: 20131009
  Receipt Date: 20131009
  Transmission Date: 20140711
  Serious: No
  Sender: FDA-Public Use
  Company Number: US-PURDUE-USA-2012-0093659

PATIENT
  Age: 39 Year
  Sex: Female
  Weight: 53.06 kg

DRUGS (2)
  1. BUTRANS [Suspect]
     Indication: PAIN
     Dosage: 5 MCG, UNK
     Route: 062
     Dates: start: 20120815, end: 20120915
  2. BUTRANS [Suspect]
     Indication: FIBROMYALGIA
     Dosage: 10 MCG, UNK
     Route: 062
     Dates: start: 20120915

REACTIONS (3)
  - Application site rash [Not Recovered/Not Resolved]
  - Application site pruritus [Unknown]
  - Inappropriate schedule of drug administration [Unknown]
